FAERS Safety Report 25664875 (Version 1)
Quarter: 2025Q3

REPORT INFORMATION
  Report Type: Spontaneous
  Country: US (occurrence: US)
  Receive Date: 20250811
  Receipt Date: 20250811
  Transmission Date: 20251020
  Serious: Yes (Other)
  Sender: MYLAN
  Company Number: US-MYLANLABS-2025M1066642

PATIENT
  Age: 23 Year
  Sex: Male

DRUGS (24)
  1. CYCLOSPORINE [Suspect]
     Active Substance: CYCLOSPORINE
     Indication: Still^s disease
  2. CYCLOSPORINE [Suspect]
     Active Substance: CYCLOSPORINE
     Route: 065
  3. CYCLOSPORINE [Suspect]
     Active Substance: CYCLOSPORINE
     Route: 065
  4. CYCLOSPORINE [Suspect]
     Active Substance: CYCLOSPORINE
  5. TACROLIMUS [Suspect]
     Active Substance: TACROLIMUS
     Indication: Still^s disease
  6. TACROLIMUS [Suspect]
     Active Substance: TACROLIMUS
     Route: 065
  7. TACROLIMUS [Suspect]
     Active Substance: TACROLIMUS
     Route: 065
  8. TACROLIMUS [Suspect]
     Active Substance: TACROLIMUS
  9. CANAKINUMAB [Suspect]
     Active Substance: CANAKINUMAB
     Indication: Still^s disease
  10. CANAKINUMAB [Suspect]
     Active Substance: CANAKINUMAB
     Route: 065
  11. CANAKINUMAB [Suspect]
     Active Substance: CANAKINUMAB
     Route: 065
  12. CANAKINUMAB [Suspect]
     Active Substance: CANAKINUMAB
  13. ANAKINRA [Suspect]
     Active Substance: ANAKINRA
     Indication: Still^s disease
  14. ANAKINRA [Suspect]
     Active Substance: ANAKINRA
     Route: 065
  15. ANAKINRA [Suspect]
     Active Substance: ANAKINRA
     Route: 065
  16. ANAKINRA [Suspect]
     Active Substance: ANAKINRA
  17. TOFACITINIB [Suspect]
     Active Substance: TOFACITINIB
     Indication: Still^s disease
  18. TOFACITINIB [Suspect]
     Active Substance: TOFACITINIB
     Route: 065
  19. TOFACITINIB [Suspect]
     Active Substance: TOFACITINIB
     Route: 065
  20. TOFACITINIB [Suspect]
     Active Substance: TOFACITINIB
  21. RUXOLITINIB [Suspect]
     Active Substance: RUXOLITINIB
     Indication: Still^s disease
  22. RUXOLITINIB [Suspect]
     Active Substance: RUXOLITINIB
     Route: 065
  23. RUXOLITINIB [Suspect]
     Active Substance: RUXOLITINIB
     Route: 065
  24. RUXOLITINIB [Suspect]
     Active Substance: RUXOLITINIB

REACTIONS (2)
  - Drug ineffective for unapproved indication [Unknown]
  - Off label use [Unknown]
